FAERS Safety Report 7956472-9 (Version None)
Quarter: 2011Q4

REPORT INFORMATION
  Report Type: 
  Country: None (occurrence: None)
  Receive Date: 20111130
  Receipt Date: 20111116
  Transmission Date: 20120403
  Serious: Yes (Hospitalization)
  Sender: FDA-Public Use
  Company Number: TPA2011A04956

PATIENT
  Age: 72 Year
  Sex: Male

DRUGS (13)
  1. FOLIC ACID [Concomitant]
  2. BETAMETHASONE [Concomitant]
  3. METOLATE (METHOTRXATE) [Concomitant]
  4. ARCRANE (SODIUM ALGINATE) [Concomitant]
  5. TRIAZOLAM [Suspect]
     Dosage: PER ORAL
     Route: 048
     Dates: end: 20110804
  6. DORAL [Suspect]
     Dosage: PER ORAL
     Route: 048
     Dates: end: 20110804
  7. FEBURIC (FEBUXOSTAT) [Suspect]
     Indication: HYPERURICAEMIA
     Dosage: 10 MG (10 MG,1 IN 1 D) PER ORAL ; 10 MG (10 MG,1 IN 1 D) PER ORAL
     Route: 048
     Dates: start: 20110802, end: 20110803
  8. FEBURIC (FEBUXOSTAT) [Suspect]
     Indication: GOUT
     Dosage: 10 MG (10 MG,1 IN 1 D) PER ORAL ; 10 MG (10 MG,1 IN 1 D) PER ORAL
     Route: 048
     Dates: start: 20110802, end: 20110803
  9. FEBURIC (FEBUXOSTAT) [Suspect]
     Indication: HYPERURICAEMIA
     Dosage: 10 MG (10 MG,1 IN 1 D) PER ORAL ; 10 MG (10 MG,1 IN 1 D) PER ORAL
     Route: 048
     Dates: start: 20110701, end: 20110704
  10. FEBURIC (FEBUXOSTAT) [Suspect]
     Indication: GOUT
     Dosage: 10 MG (10 MG,1 IN 1 D) PER ORAL ; 10 MG (10 MG,1 IN 1 D) PER ORAL
     Route: 048
     Dates: start: 20110701, end: 20110704
  11. ETISEDAN (ETIZOLAM) [Concomitant]
  12. ALLOPURINOL [Suspect]
     Dosage: (100 MG) PER ORAL
     Route: 048
     Dates: start: 20110701, end: 20110804
  13. ZOLPIDEM TARTRATE [Suspect]

REACTIONS (13)
  - ORAL MUCOSA EROSION [None]
  - DYSPNOEA [None]
  - DECREASED APPETITE [None]
  - PYREXIA [None]
  - STEVENS-JOHNSON SYNDROME [None]
  - OXYGEN SATURATION DECREASED [None]
  - RHABDOMYOLYSIS [None]
  - MALAISE [None]
  - MUCOSAL EROSION [None]
  - RASH [None]
  - INTERSTITIAL LUNG DISEASE [None]
  - DISEASE RECURRENCE [None]
  - ERYTHEMA [None]
